FAERS Safety Report 15468395 (Version 9)
Quarter: 2018Q4

REPORT INFORMATION
  Report Type: Report from Study
  Country: MX (occurrence: MX)
  Receive Date: 20181005
  Receipt Date: 20181212
  Transmission Date: 20190204
  Serious: Yes (Other)
  Sender: FDA-Public Use
  Company Number: MX-BAYER-2018-151559

PATIENT
  Age: 40 Year
  Sex: Female
  Weight: 70 kg

DRUGS (18)
  1. PARACETAMOL [Concomitant]
     Active Substance: ACETAMINOPHEN
     Dosage: UNK
  2. TRAMADOL. [Concomitant]
     Active Substance: TRAMADOL
     Dosage: 15 GTT, Q8HR
  3. STIVARGA [Suspect]
     Active Substance: REGORAFENIB
     Indication: COLORECTAL CANCER
     Dosage: 120 MG DAILY
     Route: 048
     Dates: start: 20181001, end: 2018
  4. STIVARGA [Suspect]
     Active Substance: REGORAFENIB
     Indication: COLORECTAL CANCER
     Dosage: 80 MG, BID
     Dates: start: 2018, end: 2018
  5. STIVARGA [Suspect]
     Active Substance: REGORAFENIB
     Indication: COLORECTAL CANCER
     Dosage: 200 MG, QD (5 TABLET DAILY)
     Route: 048
     Dates: start: 2018, end: 2018
  6. TRAMADOL. [Concomitant]
     Active Substance: TRAMADOL
  7. ACETAMINOPHEN. [Concomitant]
     Active Substance: ACETAMINOPHEN
     Dosage: 700 MG, Q8HR
  8. MORPHINE [Concomitant]
     Active Substance: MORPHINE
     Indication: BACK PAIN
  9. STIVARGA [Suspect]
     Active Substance: REGORAFENIB
     Indication: COLORECTAL CANCER
     Dosage: 80 MG, BID
     Route: 048
     Dates: start: 20180720, end: 2018
  10. PARACETAMOL [Concomitant]
     Active Substance: ACETAMINOPHEN
     Dosage: 700 MG, TID
  11. MORPHINE [Concomitant]
     Active Substance: MORPHINE
     Indication: PAIN
  12. OMEPRAZOLE. [Concomitant]
     Active Substance: OMEPRAZOLE
  13. TRAMADOL. [Concomitant]
     Active Substance: TRAMADOL
     Dosage: 15 DROPS EVERY 8 HOURS
  14. OMEPRAZOLE. [Concomitant]
     Active Substance: OMEPRAZOLE
     Dosage: 1 EVERY 24 HOURS
  15. OMEPRAZOLE. [Concomitant]
     Active Substance: OMEPRAZOLE
  16. OMEPRAZOLE. [Concomitant]
     Active Substance: OMEPRAZOLE
     Dosage: 1 EVERY 24 HOURS
  17. STIVARGA [Suspect]
     Active Substance: REGORAFENIB
     Indication: COLORECTAL CANCER
     Dosage: 80 MG, BID
     Dates: start: 2018
  18. TRAMADOL. [Concomitant]
     Active Substance: TRAMADOL

REACTIONS (71)
  - Abnormal loss of weight [Not Recovered/Not Resolved]
  - Chromaturia [Not Recovered/Not Resolved]
  - Rash macular [Not Recovered/Not Resolved]
  - Stress [Not Recovered/Not Resolved]
  - Diarrhoea [Not Recovered/Not Resolved]
  - Weight decreased [Recovering/Resolving]
  - Depressed mood [Not Recovered/Not Resolved]
  - Cold sweat [Not Recovered/Not Resolved]
  - General physical health deterioration [Not Recovered/Not Resolved]
  - Pneumonitis [Not Recovered/Not Resolved]
  - Discomfort [Not Recovered/Not Resolved]
  - Asthenia [Not Recovered/Not Resolved]
  - Carcinoembryonic antigen increased [Not Recovered/Not Resolved]
  - Palmar-plantar erythrodysaesthesia syndrome [Not Recovered/Not Resolved]
  - Skin discolouration [Not Recovered/Not Resolved]
  - Tachycardia [Not Recovered/Not Resolved]
  - Ageusia [Not Recovered/Not Resolved]
  - Nausea [Not Recovered/Not Resolved]
  - Ageusia [Not Recovered/Not Resolved]
  - Dyspnoea [Not Recovered/Not Resolved]
  - Vaginal haemorrhage [Not Recovered/Not Resolved]
  - Acne [Recovered/Resolved]
  - Heart rate increased [Unknown]
  - Gait disturbance [Not Recovered/Not Resolved]
  - Skin exfoliation [None]
  - Fatigue [Not Recovered/Not Resolved]
  - Alopecia [Not Recovered/Not Resolved]
  - Decreased appetite [Not Recovered/Not Resolved]
  - Stress [Not Recovered/Not Resolved]
  - Asthenia [Not Recovered/Not Resolved]
  - Discomfort [Not Recovered/Not Resolved]
  - Hepatic pain [Recovering/Resolving]
  - Hepatic pain [Not Recovered/Not Resolved]
  - Tearfulness [Not Recovered/Not Resolved]
  - Insomnia [Recovered/Resolved]
  - Neoplasm [None]
  - Haematochezia [Not Recovered/Not Resolved]
  - Stress [Not Recovered/Not Resolved]
  - Alopecia [Not Recovered/Not Resolved]
  - Feeling cold [Recovered/Resolved]
  - Muscle spasms [Recovered/Resolved]
  - Skin discolouration [Recovered/Resolved]
  - Pulmonary pain [Not Recovered/Not Resolved]
  - Back pain [Not Recovered/Not Resolved]
  - Dyspnoea [Not Recovered/Not Resolved]
  - Oral papule [Not Recovered/Not Resolved]
  - Headache [None]
  - Acne [Not Recovered/Not Resolved]
  - Nausea [Not Recovered/Not Resolved]
  - Insomnia [Recovered/Resolved with Sequelae]
  - Tremor [Recovering/Resolving]
  - Vomiting [Not Recovered/Not Resolved]
  - Depressed mood [Not Recovered/Not Resolved]
  - Dyspepsia [Not Recovered/Not Resolved]
  - Dyspnoea [Recovered/Resolved]
  - Hypothermia [Not Recovered/Not Resolved]
  - Skin burning sensation [Not Recovered/Not Resolved]
  - Peripheral coldness [Recovered/Resolved]
  - Hyperhidrosis [Not Recovered/Not Resolved]
  - Abdominal pain upper [Not Recovered/Not Resolved]
  - Overdose [None]
  - Off label use [None]
  - Fatigue [None]
  - Rectal haemorrhage [Not Recovered/Not Resolved]
  - Pain in extremity [Not Recovered/Not Resolved]
  - Anxiety [Not Recovered/Not Resolved]
  - Vomiting [Not Recovered/Not Resolved]
  - Depressed mood [Not Recovered/Not Resolved]
  - Hypophagia [Not Recovered/Not Resolved]
  - Dyspnoea [Not Recovered/Not Resolved]
  - Pulmonary pain [Not Recovered/Not Resolved]

NARRATIVE: CASE EVENT DATE: 2018
